FAERS Safety Report 5199236-4 (Version None)
Quarter: 2007Q1

REPORT INFORMATION
  Report Type: 
  Country: None (occurrence: None)
  Receive Date: 20070104
  Receipt Date: 20061226
  Transmission Date: 20070707
  Serious: Yes (Hospitalization)
  Sender: FDA-Public Use
  Company Number: JP-PFIZER INC-2006155953

PATIENT
  Sex: Female
  Weight: 58 kg

DRUGS (5)
  1. LIPITOR [Suspect]
     Indication: HYPERLIPIDAEMIA
     Dosage: DAILY DOSE:10MG-FREQ:QD
     Route: 048
     Dates: start: 20011225, end: 20021029
  2. THEOPHYLLINE [Concomitant]
     Route: 048
  3. CARBOCISTEINE [Concomitant]
     Route: 048
  4. CIMETIDINE HCL [Concomitant]
     Route: 048
  5. BECLOMETHASONE DIPROPIONATE [Concomitant]
     Route: 048

REACTIONS (1)
  - DIABETES MELLITUS [None]
